FAERS Safety Report 8254633-5 (Version None)
Quarter: 2012Q1

REPORT INFORMATION
  Report Type: 
  Country: None (occurrence: None)
  Receive Date: 20120329
  Receipt Date: 20120313
  Transmission Date: 20120608
  Serious: Yes (Other)
  Sender: FDA-Public Use
  Company Number: 2012030073

PATIENT
  Sex: Female

DRUGS (2)
  1. FELBATOL [Suspect]
     Dates: end: 20120101
  2. FELBAMATE [Suspect]
     Dates: start: 20120101

REACTIONS (5)
  - APPARENT DEATH [None]
  - ROAD TRAFFIC ACCIDENT [None]
  - CONVULSION [None]
  - PRODUCT SUBSTITUTION ISSUE [None]
  - DRUG LEVEL DECREASED [None]
